FAERS Safety Report 8384256-9 (Version None)
Quarter: 2012Q2

REPORT INFORMATION
  Report Type: 
  Country: None (occurrence: None)
  Receive Date: 20120524
  Receipt Date: 20120515
  Transmission Date: 20120825
  Serious: Yes (Hospitalization)
  Sender: FDA-Public Use
  Company Number: FR-ASTRAZENECA-2012SE31511

PATIENT
  Age: 31271 Day
  Sex: Male

DRUGS (14)
  1. LEVOTHYROXINE SODIUM [Interacting]
     Indication: HYPOTHYROIDISM
     Route: 048
  2. BISOPROLOL FUMARATE [Concomitant]
  3. LASIX [Concomitant]
  4. LANSOPRAZOLE [Concomitant]
  5. DIGOXIN [Concomitant]
  6. METFORMIN HCL [Concomitant]
  7. CRESTOR [Suspect]
     Indication: HYPERCHOLESTEROLAEMIA
     Route: 048
  8. PENTOXIFYLLINE [Interacting]
     Indication: ARRHYTHMIA
     Dosage: RESPECTIVE INTAKE, EVERY OTHER DAY, OF 1.25 TABLET AND 2.5 TABLET.
     Route: 048
     Dates: end: 20120206
  9. POTASSIUM CHLORIDE [Concomitant]
  10. ACETAMINOPHEN W/ CODEINE [Interacting]
     Indication: PAIN
     Route: 048
     Dates: start: 20120131
  11. NITRODERM [Concomitant]
     Route: 062
  12. REPAGLINIDE [Concomitant]
  13. LANSOPRAZOLE [Concomitant]
  14. GAVISCON [Concomitant]

REACTIONS (2)
  - HAEMATOMA [None]
  - DRUG INTERACTION [None]
